FAERS Safety Report 24686857 (Version 1)
Quarter: 2024Q4

REPORT INFORMATION
  Report Type: Spontaneous
  Country: IT (occurrence: IT)
  Receive Date: 20241202
  Receipt Date: 20241202
  Transmission Date: 20250115
  Serious: Yes (Hospitalization, Other)
  Sender: MYLAN
  Company Number: IT-ORG100016242-2024000646

PATIENT
  Age: 39 Year
  Sex: Female

DRUGS (12)
  1. EPINEPHRINE [Interacting]
     Active Substance: EPINEPHRINE
     Indication: Epidural test dose
     Dosage: 3 MILLILITER
     Route: 065
  2. EXPAREL [Suspect]
     Active Substance: BUPIVACAINE
     Indication: Nerve block
     Dosage: 266 MILLIGRAM, TOTAL
  3. EXPAREL [Suspect]
     Active Substance: BUPIVACAINE
     Indication: Pain management
  4. EXPAREL [Suspect]
     Active Substance: BUPIVACAINE
     Indication: Colectomy
  5. BUPIVACAINE [Suspect]
     Active Substance: BUPIVACAINE
     Indication: Nerve block
     Dosage: 30 MILLILITER, TOTAL
  6. BUPIVACAINE [Suspect]
     Active Substance: BUPIVACAINE
     Indication: Pain management
  7. BUPIVACAINE [Suspect]
     Active Substance: BUPIVACAINE
     Indication: Colectomy
  8. BUPIVACAINE [Suspect]
     Active Substance: BUPIVACAINE
     Indication: Postoperative analgesia
     Dosage: UNK (EPIDURAL INFUSION BASAL RATE 8ML PER HOUR)
     Route: 008
  9. LIDOCAINE [Interacting]
     Active Substance: LIDOCAINE
     Indication: Epidural test dose
     Dosage: 3 MILLILITER
     Route: 065
  10. ACETAMINOPHEN [Concomitant]
     Active Substance: ACETAMINOPHEN
     Indication: Analgesic therapy
     Dosage: UNK
     Route: 065
  11. KETAMINE [Concomitant]
     Active Substance: KETAMINE
     Indication: Analgesic therapy
     Dosage: UNK
     Route: 065
  12. MORPHINE [Concomitant]
     Active Substance: MORPHINE
     Indication: Analgesic therapy
     Dosage: UNK
     Route: 065

REACTIONS (8)
  - Postoperative ileus [Unknown]
  - Procedural pain [Unknown]
  - Hypoaesthesia [Unknown]
  - Tachycardia [Unknown]
  - Post procedural fever [Unknown]
  - Labelled drug-drug interaction medication error [Unknown]
  - Drug ineffective [Unknown]
  - Inappropriate schedule of product administration [Unknown]
